FAERS Safety Report 22633315 (Version 1)
Quarter: 2023Q2

REPORT INFORMATION
  Report Type: Spontaneous
  Country: CA (occurrence: None)
  Receive Date: 20230623
  Receipt Date: 20230623
  Transmission Date: 20230722
  Serious: Yes (Other)
  Sender: FDA-Public Use
  Company Number: CA-PFIZER INC-202300062227

PATIENT
  Age: 44 Year
  Sex: Female

DRUGS (5)
  1. METHOTREXATE [Suspect]
     Active Substance: METHOTREXATE
     Indication: Psoriatic arthropathy
  2. METHOTREXATE [Suspect]
     Active Substance: METHOTREXATE
  3. ABRILADA [Concomitant]
     Active Substance: ADALIMUMAB-AFZB
     Indication: Psoriatic arthropathy
     Dosage: 40 MG EVERY 2 WEEK PREFILLED PEN
     Dates: start: 20230214
  4. LEFLUNOMIDE [Concomitant]
     Active Substance: LEFLUNOMIDE
  5. SULFASALAZINE [Concomitant]
     Active Substance: SULFASALAZINE

REACTIONS (3)
  - C-reactive protein increased [Unknown]
  - Drug ineffective [Unknown]
  - Condition aggravated [Unknown]
